FAERS Safety Report 5827298-7 (Version None)
Quarter: 2008Q3

REPORT INFORMATION
  Report Type: 
  Country: None (occurrence: None)
  Receive Date: 20080725
  Receipt Date: 20080718
  Transmission Date: 20090109
  Serious: Yes (Other)
  Sender: FDA-Public Use
  Company Number: GXKR2008ES05862

PATIENT
  Age: 47 Year
  Sex: Male

DRUGS (4)
  1. OMEPRAZOLE [Suspect]
     Indication: DUODENAL ULCER
  2. ADRENALIN (EPINEPHRINE) UNKNOWN [Concomitant]
  3. POLIDOCANOL (POLIDOCANOL) UNKNOWN [Concomitant]
  4. METOCLOPRAMIDE (METOCLOPRAMIDE) UNKNOWN [Concomitant]

REACTIONS (2)
  - ACUTE GENERALISED EXANTHEMATOUS PUSTULOSIS [None]
  - PRURITUS [None]
